FAERS Safety Report 21094126 (Version 1)
Quarter: 2022Q3

REPORT INFORMATION
  Report Type: Spontaneous
  Country: IR (occurrence: IR)
  Receive Date: 20220718
  Receipt Date: 20220718
  Transmission Date: 20221027
  Serious: Yes (Life-Threatening, Hospitalization, Other)
  Sender: FDA-Public Use
  Company Number: IR-MLMSERVICE-20220705-3647972-1

PATIENT
  Age: 53 Year
  Sex: Male

DRUGS (6)
  1. FLUOROURACIL [Suspect]
     Active Substance: FLUOROURACIL
     Indication: Metastases to liver
     Dosage: FIVE CHEMOTHERAPY COURSES, CUMULATIVE DOSE- 5 CYCLE
  2. IRINOTECAN [Suspect]
     Active Substance: IRINOTECAN
     Indication: Colon cancer
     Dosage: FIVE CHEMOTHERAPY COURSES, CUMULATIVE DOSE- 5 CYCLE
  3. LEUCOVORIN [Suspect]
     Active Substance: LEUCOVORIN
     Indication: Metastases to liver
     Dosage: FIVE CHEMOTHERAPY COURSES, CUMULATIVE DOSE- 5 CYCLE
  4. FLUOROURACIL [Suspect]
     Active Substance: FLUOROURACIL
     Indication: Colon cancer
     Dosage: FIVE CHEMOTHERAPY COURSES, CUMULATIVE DOSE- 5 CYCLE
  5. IRINOTECAN [Suspect]
     Active Substance: IRINOTECAN
     Indication: Metastases to liver
     Dosage: FIVE CHEMOTHERAPY COURSES, CUMULATIVE DOSE- 5 CYCLE
  6. LEUCOVORIN [Suspect]
     Active Substance: LEUCOVORIN
     Indication: Colon cancer
     Dosage: FIVE CHEMOTHERAPY COURSES, CUMULATIVE DOSE- 5 CYCLE

REACTIONS (3)
  - Neutropenia [Unknown]
  - Necrotising colitis [Recovering/Resolving]
  - Colitis ischaemic [Recovering/Resolving]
